FAERS Safety Report 6267966-9 (Version None)
Quarter: 2009Q3

REPORT INFORMATION
  Report Type: 
  Country: None (occurrence: None)
  Receive Date: 20090713
  Receipt Date: 20090710
  Transmission Date: 20100115
  Serious: Yes (Death, Hospitalization)
  Sender: FDA-Public Use
  Company Number: 2008SP019926

PATIENT
  Age: 53 Year
  Sex: Female
  Weight: 65.9 kg

DRUGS (5)
  1. TEMODAR [Suspect]
     Indication: GLIOBLASTOMA MULTIFORME
     Dosage: PO
     Route: 048
     Dates: start: 20080811, end: 20080903
  2. TEMODAR [Suspect]
     Indication: GLIOBLASTOMA MULTIFORME
     Dosage: PO
     Route: 048
     Dates: start: 20071210
  3. DECADRON [Suspect]
     Indication: BRAIN OEDEMA
     Dosage: 4 MG; BID
     Dates: start: 20080731
  4. BACTRIM [Suspect]
     Indication: DRUG USE FOR UNKNOWN INDICATION
  5. DEPAKOTE [Concomitant]

REACTIONS (17)
  - BLOOD PH INCREASED [None]
  - BONE MARROW FAILURE [None]
  - ENCEPHALOMALACIA [None]
  - ENCEPHALOPATHY [None]
  - FALL [None]
  - HYPOTENSION [None]
  - IMMUNOSUPPRESSION [None]
  - INCORRECT DRUG ADMINISTRATION DURATION [None]
  - LETHARGY [None]
  - MENTAL IMPAIRMENT [None]
  - OVERDOSE [None]
  - PNEUMOCYSTIS JIROVECI PNEUMONIA [None]
  - PNEUMONIA ASPIRATION [None]
  - RESPIRATORY FAILURE [None]
  - SEPSIS [None]
  - SPINAL COMPRESSION FRACTURE [None]
  - URINARY INCONTINENCE [None]
